FAERS Safety Report 25839337 (Version 1)
Quarter: 2025Q3

REPORT INFORMATION
  Report Type: Spontaneous
  Country: AU (occurrence: AU)
  Receive Date: 20250924
  Receipt Date: 20250924
  Transmission Date: 20251020
  Serious: Yes (Other)
  Sender: TEVA
  Company Number: AU-TEVA-VS-3374085

PATIENT
  Age: 75 Year
  Sex: Male

DRUGS (1)
  1. LEFLUNOMIDE [Suspect]
     Active Substance: LEFLUNOMIDE
     Indication: Product used for unknown indication
     Route: 065
     Dates: start: 202508

REACTIONS (2)
  - Diffuse large B-cell lymphoma [Unknown]
  - Pain in extremity [Unknown]
